FAERS Safety Report 8920550 (Version 1)
Quarter: 2012Q4

REPORT INFORMATION
  Report Type: Report from Study
  Country: US (occurrence: US)
  Receive Date: 20121121
  Receipt Date: 20121121
  Transmission Date: 20130627
  Serious: Yes (Other)
  Sender: FDA-Public Use
  Company Number: US-ABBOTT-12P-163-1008242-00

PATIENT
  Age: 31 Year
  Sex: Female

DRUGS (1)
  1. HUMIRA [Suspect]
     Indication: CROHN^S DISEASE
     Dates: end: 201106

REACTIONS (7)
  - Intestinal obstruction [Unknown]
  - Abscess intestinal [Unknown]
  - Intestinal stenosis [Unknown]
  - Mastectomy [Not Recovered/Not Resolved]
  - Hysterectomy [Unknown]
  - Dyspepsia [Unknown]
  - Diarrhoea [Unknown]
